FAERS Safety Report 24868840 (Version 1)
Quarter: 2025Q1

REPORT INFORMATION
  Report Type: Spontaneous
  Country: US (occurrence: US)
  Receive Date: 20250121
  Receipt Date: 20250121
  Transmission Date: 20250408
  Serious: Yes (Death, Hospitalization, Other)
  Sender: PFIZER
  Company Number: US-PFIZER INC-202500012487

PATIENT
  Age: 87 Year
  Sex: Male

DRUGS (18)
  1. DILTIAZEM HYDROCHLORIDE [Suspect]
     Active Substance: DILTIAZEM HYDROCHLORIDE
     Route: 048
  2. GLIMEPIRIDE [Suspect]
     Active Substance: GLIMEPIRIDE
     Route: 048
  3. CARVEDILOL [Suspect]
     Active Substance: CARVEDILOL
     Route: 048
  4. POTASSIUM CHLORIDE [Suspect]
     Active Substance: POTASSIUM CHLORIDE
     Route: 048
  5. LISINOPRIL [Suspect]
     Active Substance: LISINOPRIL
     Route: 048
  6. FUROSEMIDE [Suspect]
     Active Substance: FUROSEMIDE
     Route: 048
  7. TAMSULOSIN [Suspect]
     Active Substance: TAMSULOSIN
     Route: 048
  8. ACETAZOLAMIDE [Suspect]
     Active Substance: ACETAZOLAMIDE
     Route: 048
  9. ASPIRIN [Suspect]
     Active Substance: ASPIRIN
     Route: 048
  10. APIXABAN [Suspect]
     Active Substance: APIXABAN
     Route: 048
  11. CINNAMON [Suspect]
     Active Substance: CINNAMON
     Route: 048
  12. FAMOTIDINE [Suspect]
     Active Substance: FAMOTIDINE
     Route: 048
  13. FERROUS SULFATE [Suspect]
     Active Substance: FERROUS SULFATE
     Route: 048
  14. LORATADINE [Suspect]
     Active Substance: LORATADINE
     Route: 048
  15. METFORMIN [Suspect]
     Active Substance: METFORMIN HYDROCHLORIDE
     Route: 048
  16. FISH OIL [Suspect]
     Active Substance: FISH OIL
     Route: 048
  17. ROSUVASTATIN [Suspect]
     Active Substance: ROSUVASTATIN
     Route: 048
  18. TRAMADOL [Suspect]
     Active Substance: TRAMADOL
     Route: 048

REACTIONS (2)
  - Medication error [Fatal]
  - Death [Fatal]

NARRATIVE: CASE EVENT DATE: 20230101
